FAERS Safety Report 5196899-4 (Version None)
Quarter: 2007Q1

REPORT INFORMATION
  Report Type: 
  Country: None (occurrence: None)
  Receive Date: 20070103
  Receipt Date: 20061228
  Transmission Date: 20070707
  Serious: Yes (Life-Threatening, Hospitalization)
  Sender: FDA-Public Use
  Company Number: PHRM2006FR03248

PATIENT
  Age: 82 Year
  Sex: Male

DRUGS (9)
  1. VOLTARENE LP [Suspect]
     Indication: NECK PAIN
     Dosage: 100 MG, PRN
     Route: 048
     Dates: start: 19850101, end: 20060801
  2. DIPROSONE [Concomitant]
     Dosage: 1 DF, BID
     Route: 061
  3. MIZOLLEN [Concomitant]
     Dosage: 10 MG, QD
     Route: 048
  4. ZOCOR [Concomitant]
     Dosage: 20 MG, QD
     Route: 048
  5. GAVISCON [Concomitant]
     Dosage: 1 DF, QD
     Route: 048
  6. LANZOR [Concomitant]
     Dosage: 15 MG, QD
     Route: 048
  7. AVODART [Concomitant]
     Dosage: 0.5 MG, QD
     Route: 048
  8. DYSALFA [Concomitant]
     Dosage: 5 MG, QD
     Route: 048
  9. DIALGIREX [Concomitant]
     Dosage: 3 X 1 CAPS/DAY
     Route: 048

REACTIONS (3)
  - HYPOXIA [None]
  - PULMONARY FIBROSIS [None]
  - PULMONARY FUNCTION TEST DECREASED [None]
